FAERS Safety Report 8609668-7 (Version None)
Quarter: 2012Q3

REPORT INFORMATION
  Report Type: 
  Country: None (occurrence: None)
  Receive Date: 20120821
  Receipt Date: 20120814
  Transmission Date: 20120928
  Serious: Yes (Other)
  Sender: FDA-Public Use
  Company Number: PHHY2011GB85515

PATIENT
  Age: 69 Year
  Sex: Female

DRUGS (3)
  1. METHOTREXATE [Suspect]
     Indication: RHEUMATOID ARTHRITIS
     Dosage: 7.5 MG, PER WEEK
     Route: 048
  2. PREDNISOLONE [Concomitant]
     Dosage: 5 MG/DAY
  3. CELECOXIB [Concomitant]

REACTIONS (9)
  - ATTENTION DEFICIT/HYPERACTIVITY DISORDER [None]
  - VISION BLURRED [None]
  - LYMPHOPENIA [None]
  - HALLUCINATION, VISUAL [None]
  - COORDINATION ABNORMAL [None]
  - DISORIENTATION [None]
  - THYROXINE FREE INCREASED [None]
  - POSTERIOR REVERSIBLE ENCEPHALOPATHY SYNDROME [None]
  - HEADACHE [None]
